FAERS Safety Report 9182396 (Version 1)
Quarter: 2012Q4

REPORT INFORMATION
  Report Type: 
  Country: US (occurrence: US)
  Receive Date: 20121030
  Receipt Date: 20121030
  Transmission Date: 20130627
  Serious: No
  Sender: FDA-Public Use
  Company Number: US-GLAXOSMITHKLINE-A0944786A

PATIENT
  Age: 47 Year
  Sex: Female

DRUGS (2)
  1. IMITREX [Suspect]
     Indication: HEADACHE
     Route: 045
     Dates: start: 20110903
  2. IBUPROFEN [Concomitant]

REACTIONS (2)
  - Drug effect decreased [Unknown]
  - Product quality issue [Unknown]
